FAERS Safety Report 8321899-2 (Version None)
Quarter: 2012Q2

REPORT INFORMATION
  Report Type: 
  Country: None (occurrence: None)
  Receive Date: 20120426
  Receipt Date: 20120416
  Transmission Date: 20120825
  Serious: Yes (Life-Threatening)
  Sender: FDA-Public Use
  Company Number: 1259804

PATIENT
  Age: 26 Year
  Sex: Female
  Weight: 59 kg

DRUGS (4)
  1. METHOTREXATE [Suspect]
     Indication: RHEUMATOID ARTHRITIS
     Dosage: 20 MG MILLIGRAM(S), 1 WEEK
  2. FOLIC ACID [Concomitant]
  3. HYDROXYCHLOROQUINE SULFATE [Suspect]
     Indication: RHEUMATOID ARTHRITIS
     Dosage: 400 MG MILLIGRAM(S)
  4. (GOLIMUMAB) [Concomitant]

REACTIONS (20)
  - PORTAL HYPERTENSION [None]
  - ANAEMIA [None]
  - INTERNATIONAL NORMALISED RATIO INCREASED [None]
  - DISEASE PROGRESSION [None]
  - HYPOVOLAEMIC SHOCK [None]
  - PLATELET COUNT DECREASED [None]
  - TOXICITY TO VARIOUS AGENTS [None]
  - ABDOMINAL PAIN [None]
  - HEPATIC FUNCTION ABNORMAL [None]
  - CERULOPLASMIN DECREASED [None]
  - HEPATITIS [None]
  - LIVER INJURY [None]
  - HEPATIC CIRRHOSIS [None]
  - HEPATIC FIBROSIS [None]
  - MALAISE [None]
  - LIVER DISORDER [None]
  - ASCITES [None]
  - OESOPHAGEAL VARICES HAEMORRHAGE [None]
  - ANTINUCLEAR ANTIBODY POSITIVE [None]
  - THROMBOSIS [None]
